FAERS Safety Report 7096707-0 (Version None)
Quarter: 2010Q4

REPORT INFORMATION
  Report Type: 
  Country: None (occurrence: None)
  Receive Date: 20101111
  Receipt Date: 20091104
  Transmission Date: 20110411
  Serious: No
  Sender: FDA-Public Use
  Company Number: US-KINGPHARMUSA00001-K200901391

PATIENT
  Sex: Male

DRUGS (2)
  1. EMBEDA [Suspect]
     Indication: PAIN
     Dosage: 80 MG, UNK
     Dates: end: 20091001
  2. MUSCLE RELAXANTS [Concomitant]
     Indication: MUSCLE RELAXANT THERAPY
     Dosage: UNK

REACTIONS (1)
  - ANXIETY [None]
